FAERS Safety Report 7966034-5 (Version None)
Quarter: 2011Q4

REPORT INFORMATION
  Report Type: 
  Country: None (occurrence: None)
  Receive Date: 20111208
  Receipt Date: 20111204
  Transmission Date: 20120403
  Serious: No
  Sender: FDA-Public Use
  Company Number: US-PFIZER INC-2011295491

PATIENT
  Sex: Female

DRUGS (2)
  1. IBUPROFEN (ADVIL) [Suspect]
     Indication: HEADACHE
     Dosage: UNK, EVERY 6 HOURS
  2. PERCOCET [Concomitant]
     Dosage: UNK, EVERY 6 HOURS

REACTIONS (1)
  - EYE SWELLING [None]
